FAERS Safety Report 16418581 (Version 1)
Quarter: 2019Q2

REPORT INFORMATION
  Report Type: Spontaneous
  Country: US (occurrence: US)
  Receive Date: 20190612
  Receipt Date: 20190612
  Transmission Date: 20190711
  Serious: No
  Sender: FDA-Public Use
  Company Number: US-SUN PHARMACEUTICAL INDUSTRIES LTD-2018R1-193608

PATIENT
  Age: 16 Year
  Sex: Male

DRUGS (1)
  1. ABSORICA [Suspect]
     Active Substance: ISOTRETINOIN
     Indication: ACNE
     Dosage: 1 DOSAGE FORM, DAILY
     Route: 065
     Dates: start: 20181128

REACTIONS (5)
  - Dehydration [Unknown]
  - Off label use [Unknown]
  - Underdose [Unknown]
  - Blood urine present [Unknown]
  - Hypernatraemia [Unknown]

NARRATIVE: CASE EVENT DATE: 2018
